FAERS Safety Report 9079360 (Version 1)
Quarter: 2013Q1

REPORT INFORMATION
  Report Type: Report from Study
  Country: US (occurrence: US)
  Receive Date: 20130130
  Receipt Date: 20130130
  Transmission Date: 20140127
  Serious: No
  Sender: FDA-Public Use
  Company Number: US-ABBOTT-12P-163-0975312-00

PATIENT
  Age: 76 Year
  Sex: Male

DRUGS (16)
  1. HUMIRA [Suspect]
     Indication: RHEUMATOID ARTHRITIS
  2. LEXAPRO [Concomitant]
     Indication: DRUG THERAPY
  3. BISOPROLOL FUMARATE [Concomitant]
     Indication: DRUG THERAPY
  4. FISH OIL [Concomitant]
     Indication: DRUG THERAPY
  5. PLAVIX [Concomitant]
     Indication: DRUG THERAPY
  6. ASA [Concomitant]
     Indication: DRUG THERAPY
  7. NIASPAN [Concomitant]
     Indication: DRUG THERAPY
  8. LIPITOR [Concomitant]
     Indication: DRUG THERAPY
  9. DAILY VITAMINS [Concomitant]
     Indication: PRODUCT USED FOR UNKNOWN INDICATION
  10. GLUCOTROL XL [Concomitant]
     Indication: DIABETES MELLITUS
  11. ASCORBIC ACID [Concomitant]
     Indication: PRODUCT USED FOR UNKNOWN INDICATION
  12. ARAVA [Concomitant]
     Indication: RHEUMATOID ARTHRITIS
  13. VICODIN [Concomitant]
     Indication: RHEUMATOID ARTHRITIS
  14. VICODIN [Concomitant]
     Indication: BACK PAIN
  15. LAXATIVES [Concomitant]
     Indication: PRODUCT USED FOR UNKNOWN INDICATION
  16. SLEEPING PILL [Concomitant]
     Indication: PRODUCT USED FOR UNKNOWN INDICATION

REACTIONS (2)
  - Laceration [Recovering/Resolving]
  - Neuralgia [Recovering/Resolving]
